FAERS Safety Report 10489705 (Version 1)
Quarter: 2014Q4

REPORT INFORMATION
  Report Type: Spontaneous
  Country: GP (occurrence: FR)
  Receive Date: 20141002
  Receipt Date: 20141002
  Transmission Date: 20150528
  Serious: Yes (Other)
  Sender: FDA-Public Use
  Company Number: GP-ASTRAZENECA-2014SE73017

PATIENT
  Age: 73 Year
  Sex: Male

DRUGS (3)
  1. ANTIHYPERTENSIVE TREATMENT [Concomitant]
  2. CRESTOR [Suspect]
     Active Substance: ROSUVASTATIN CALCIUM
     Indication: CEREBROVASCULAR ACCIDENT
     Route: 048
     Dates: start: 2008, end: 201407
  3. KARDEGIC [Concomitant]
     Active Substance: ASPIRIN LYSINE

REACTIONS (1)
  - Amyotrophy [Not Recovered/Not Resolved]
